FAERS Safety Report 4865020-1 (Version None)
Quarter: 2005Q4

REPORT INFORMATION
  Report Type: 
  Country: None (occurrence: None)
  Receive Date: 20051223
  Receipt Date: 20051212
  Transmission Date: 20060501
  Serious: Yes (Disabling)
  Sender: FDA-Public Use
  Company Number: PHNR2005AU01710

PATIENT
  Age: 75 Year
  Sex: Female

DRUGS (13)
  1. CAPECITABINE [Concomitant]
     Dosage: 1000MG, DAY 1 TO DAY 14
     Dates: start: 20040317, end: 20050124
  2. STEROIDS NOS [Concomitant]
     Dosage: LOW DOSE, VARIABLE
  3. ARATAC [Concomitant]
  4. OROXINE [Concomitant]
  5. TEMAZEPAM [Concomitant]
  6. CALTRATE + D [Concomitant]
  7. PRAMIN [Concomitant]
  8. MS CONTIN [Concomitant]
  9. MOVICOL [Concomitant]
  10. COLOXYL WITH SENNA [Concomitant]
  11. FEMARA [Concomitant]
  12. ANTIINFECTIVES [Concomitant]
     Dosage: OCCASIONALY
  13. ZOMETA [Suspect]
     Indication: BREAST CANCER FEMALE
     Dosage: 4 MG, Q 4/52
     Dates: start: 20040116, end: 20051001

REACTIONS (6)
  - BONE DISORDER [None]
  - IMPAIRED HEALING [None]
  - OSTEONECROSIS [None]
  - PAIN IN JAW [None]
  - SOFT TISSUE DISORDER [None]
  - SOFT TISSUE INFECTION [None]
